FAERS Safety Report 9650860 (Version 3)
Quarter: 2013Q4

REPORT INFORMATION
  Report Type: Spontaneous
  Country: DE (occurrence: DE)
  Receive Date: 20131029
  Receipt Date: 20131115
  Transmission Date: 20140711
  Serious: Yes (Hospitalization, Other)
  Sender: FDA-Public Use
  Company Number: DE-JNJFOC-20131016382

PATIENT
  Age: 55 Year
  Sex: Male
  Weight: 100 kg

DRUGS (8)
  1. XARELTO [Suspect]
     Indication: CEREBROVASCULAR ACCIDENT PROPHYLAXIS
     Route: 048
     Dates: start: 201205, end: 20120810
  2. XARELTO [Suspect]
     Indication: ATRIAL FIBRILLATION
     Route: 048
     Dates: start: 201205, end: 20120810
  3. RAMIPRIL [Concomitant]
     Dosage: OM
     Route: 065
  4. AMLODIPINE [Concomitant]
     Route: 065
  5. AMLODIPINE [Concomitant]
     Dosage: OM
     Route: 065
  6. BISOPROLOL [Concomitant]
     Route: 065
  7. BISOPROLOL [Concomitant]
     Dosage: OM
     Route: 065
  8. RAMIPRIL COMP [Concomitant]
     Route: 065

REACTIONS (2)
  - Cerebral infarction [Recovering/Resolving]
  - Drug ineffective [Unknown]
